FAERS Safety Report 8034081-3 (Version None)
Quarter: 2012Q1

REPORT INFORMATION
  Report Type: 
  Country: None (occurrence: None)
  Receive Date: 20120110
  Receipt Date: 20120106
  Transmission Date: 20120608
  Serious: Yes (Death, Life-Threatening, Hospitalization)
  Sender: FDA-Public Use
  Company Number: JP-B.I. PHARMACEUTICALS,INC./RIDGEFIELD-2011-BP-28144NB

PATIENT
  Sex: Male
  Weight: 65 kg

DRUGS (9)
  1. CANDESARTAN CILEXETIL [Concomitant]
     Dosage: 4 MG
     Route: 048
     Dates: start: 20090818, end: 20111213
  2. TENORMIN [Concomitant]
     Dosage: 50 MG
     Route: 048
     Dates: start: 20090204, end: 20111213
  3. MAGMITT [Concomitant]
     Dosage: 1980 MG
     Route: 048
     Dates: start: 20110816, end: 20111213
  4. LANSOPRAZOLE [Concomitant]
     Dosage: 30 MG
     Route: 048
     Dates: start: 20110727, end: 20110729
  5. OMEPRAZOLE [Concomitant]
     Dosage: 20 MG
     Route: 048
     Dates: start: 20111113, end: 20111213
  6. PRAVASTATIN SODIUM [Concomitant]
     Dosage: 10 MG
     Route: 048
     Dates: start: 20081118, end: 20111212
  7. PRADAXA [Suspect]
     Indication: ATRIAL FIBRILLATION
     Dosage: 220 MG
     Route: 048
     Dates: start: 20110510
  8. AMLODIN OD [Concomitant]
     Dosage: 5 MG
     Route: 048
     Dates: start: 20030305, end: 20111213
  9. PRADAXA [Suspect]
     Dosage: 220 MG
     Route: 048
     Dates: start: 20111001, end: 20111209

REACTIONS (3)
  - DRUG INEFFECTIVE [None]
  - CEREBRAL INFARCTION [None]
  - GASTRIC ULCER HAEMORRHAGE [None]
